FAERS Safety Report 24047439 (Version 1)
Quarter: 2024Q3

REPORT INFORMATION
  Report Type: Spontaneous
  Country: CN (occurrence: None)
  Receive Date: 20240703
  Receipt Date: 20240703
  Transmission Date: 20241017
  Serious: Yes (Life-Threatening, Other)
  Sender: ASTRAZENECA
  Company Number: 2024A152520

PATIENT
  Age: 22666 Day
  Sex: Male
  Weight: 60 kg

DRUGS (3)
  1. SAXAGLIPTIN AND METFORMIN HYDROCHLORIDE [Suspect]
     Active Substance: METFORMIN HYDROCHLORIDE\SAXAGLIPTIN
     Indication: Blood glucose decreased
     Route: 048
     Dates: start: 20240605, end: 20240609
  2. GLIMEPIRIDE [Suspect]
     Active Substance: GLIMEPIRIDE
     Indication: Blood glucose decreased
     Route: 048
     Dates: start: 20240605, end: 20240609
  3. ACARBOSE [Suspect]
     Active Substance: ACARBOSE
     Indication: Blood glucose decreased
     Route: 048
     Dates: start: 20240605, end: 20240609

REACTIONS (1)
  - Hypoglycaemic coma [Recovering/Resolving]

NARRATIVE: CASE EVENT DATE: 20240609
